FAERS Safety Report 9833002 (Version 1)
Quarter: 2014Q1

REPORT INFORMATION
  Report Type: Report from Study
  Country: CH (occurrence: CH)
  Receive Date: 20140121
  Receipt Date: 20140121
  Transmission Date: 20141002
  Serious: Yes (Death)
  Sender: FDA-Public Use
  Company Number: CH-PFIZER INC-2014013989

PATIENT
  Age: 38 Year
  Sex: Male

DRUGS (3)
  1. HALOPERIDOL [Suspect]
     Dosage: 15 MG, UNK
  2. OLANZAPINE [Suspect]
     Dosage: 20 MG, UNK
  3. PROMAZINE [Suspect]
     Dosage: 100 MG, UNK

REACTIONS (2)
  - Electrocardiogram QT prolonged [Fatal]
  - Sudden cardiac death [Fatal]
